FAERS Safety Report 21729483 (Version 2)
Quarter: 2023Q1

REPORT INFORMATION
  Report Type: Spontaneous
  Country: US (occurrence: US)
  Receive Date: 20221214
  Receipt Date: 20230124
  Transmission Date: 20230418
  Serious: Yes (Other)
  Sender: FDA-Public Use
  Company Number: US-PFIZER INC-202201364627

PATIENT
  Age: 77 Year
  Sex: Female

DRUGS (1)
  1. IBRANCE [Suspect]
     Active Substance: PALBOCICLIB
     Dosage: UNK

REACTIONS (5)
  - Choking [Unknown]
  - Cough [Recovered/Resolved]
  - Throat clearing [Unknown]
  - Headache [Recovered/Resolved]
  - Sinus disorder [Recovered/Resolved]
